FAERS Safety Report 24927815 (Version 1)
Quarter: 2025Q1

REPORT INFORMATION
  Report Type: Spontaneous
  Country: PL (occurrence: PL)
  Receive Date: 20250205
  Receipt Date: 20250205
  Transmission Date: 20250408
  Serious: Yes (Other)
  Sender: ACCORD
  Company Number: None

PATIENT
  Age: 63 Year
  Sex: Male
  Weight: 94 kg

DRUGS (3)
  1. IRINOTECAN [Suspect]
     Active Substance: IRINOTECAN
     Indication: Product used for unknown indication
     Dosage: APPROXIMATE APPLICATION TIME: AFTERNOON HOURS 15:00-18:00
     Dates: start: 20200917, end: 20200917
  2. IRINOTECAN [Suspect]
     Active Substance: IRINOTECAN
     Indication: Product used for unknown indication
     Dosage: APPROXIMATE APPLICATION TIME: AFTERNOON HOURS 15:00-18:00
     Dates: start: 20200917, end: 20200920
  3. IRINOTECAN [Suspect]
     Active Substance: IRINOTECAN
     Indication: Product used for unknown indication
     Dosage: APPROXIMATE APPLICATION TIME: AFTERNOON HOURS 15:00-18:00
     Dates: start: 20200917, end: 20200917

REACTIONS (4)
  - Chills [Recovering/Resolving]
  - Hyperhidrosis [Recovering/Resolving]
  - Erythema [Recovering/Resolving]
  - Blood pressure decreased [Recovering/Resolving]

NARRATIVE: CASE EVENT DATE: 20200917
